APPROVED DRUG PRODUCT: AMIKACIN SULFATE
Active Ingredient: AMIKACIN SULFATE
Strength: EQ 250MG BASE/ML
Dosage Form/Route: INJECTABLE;INJECTION
Application: A063315 | Product #001 | TE Code: AP
Applicant: HIKMA PHARMACEUTICALS USA INC
Approved: Apr 11, 1994 | RLD: No | RS: No | Type: RX